FAERS Safety Report 4870552-6 (Version None)
Quarter: 2006Q1

REPORT INFORMATION
  Report Type: 
  Country: None (occurrence: None)
  Receive Date: 20060103
  Receipt Date: 20051223
  Transmission Date: 20060701
  Serious: Yes (Hospitalization)
  Sender: FDA-Public Use
  Company Number: PHRM2005FR03359

PATIENT
  Age: 38 Year
  Sex: Female

DRUGS (9)
  1. VOLTAREN [Suspect]
     Dosage: 50 MG, QD
     Route: 048
     Dates: start: 20050501, end: 20051105
  2. INIPOMP [Suspect]
     Dosage: 20 MG, QD
     Route: 048
     Dates: start: 20051010, end: 20051108
  3. SULFASALAZINE [Suspect]
     Dosage: 500 MG, QD
     Route: 048
     Dates: start: 20051010
  4. SULFASALAZINE [Suspect]
     Dosage: 500 MG, BID
     Route: 048
  5. SULFASALAZINE [Suspect]
     Dosage: 1 TAB/MORNING, 2 TAB/EVENING
     Route: 048
  6. SULFASALAZINE [Suspect]
     Dosage: 1000 MG, BID
     Route: 048
     Dates: end: 20051105
  7. ZITHROMAX [Suspect]
     Indication: PHARYNGITIS
     Route: 048
     Dates: start: 20051102, end: 20051104
  8. COLCHIMAX [Suspect]
     Route: 048
     Dates: start: 20051010, end: 20051105
  9. VOLTARENE LP [Suspect]
     Dosage: 100 MG, QD
     Route: 048
     Dates: start: 20050501, end: 20051105

REACTIONS (8)
  - APHTHOUS STOMATITIS [None]
  - BODY TEMPERATURE INCREASED [None]
  - C-REACTIVE PROTEIN INCREASED [None]
  - DERMATITIS BULLOUS [None]
  - GENITAL ULCERATION [None]
  - PHARYNGITIS [None]
  - RASH PAPULAR [None]
  - WHITE BLOOD CELL COUNT INCREASED [None]
